FAERS Safety Report 7085673-X (Version None)
Quarter: 2010Q4

REPORT INFORMATION
  Report Type: 
  Country: None (occurrence: None)
  Receive Date: 20101105
  Receipt Date: 20101101
  Transmission Date: 20110411
  Serious: Yes (Disabling, Other)
  Sender: FDA-Public Use
  Company Number: JP-PFIZER INC-2010138299

PATIENT
  Age: 75 Year
  Sex: Male

DRUGS (5)
  1. SOLU-MEDROL [Suspect]
     Indication: INTERSTITIAL LUNG DISEASE
     Dosage: 1000 MG, UNK
     Route: 042
     Dates: start: 20101009, end: 20101011
  2. SOLU-MEDROL [Interacting]
     Dosage: IT WAS TAPERED
     Dates: start: 20101012
  3. ETHINYL ESTRADIOL [Interacting]
     Indication: PROSTATE CANCER
     Dosage: UNK
  4. TAKEPRON [Concomitant]
     Dosage: UNK
  5. THYRADIN [Concomitant]
     Indication: THYROID DISORDER
     Dosage: UNK
     Dates: start: 20101016

REACTIONS (2)
  - DRUG INTERACTION [None]
  - HEPATIC FUNCTION ABNORMAL [None]
